FAERS Safety Report 11146843 (Version 1)
Quarter: 2015Q2

REPORT INFORMATION
  Report Type: Spontaneous
  Country: US (occurrence: None)
  Receive Date: 20150527
  Receipt Date: 20150527
  Transmission Date: 20150821
  Serious: Yes (Other)
  Sender: FDA-Public Use
  Company Number: None

PATIENT
  Age: 28 Year
  Sex: Female
  Weight: 54.43 kg

DRUGS (4)
  1. ZYRTEC [Concomitant]
     Active Substance: CETIRIZINE HYDROCHLORIDE
  2. PARAGARD T 380A [Suspect]
     Active Substance: COPPER
  3. MULTI VITAMIN [Concomitant]
     Active Substance: VITAMINS
  4. VITAMIN D [Concomitant]
     Active Substance: CHOLECALCIFEROL

REACTIONS (6)
  - Abdominal pain upper [None]
  - Menorrhagia [None]
  - Haemorrhage [None]
  - Muscle spasms [None]
  - Back pain [None]
  - Dyspareunia [None]

NARRATIVE: CASE EVENT DATE: 20150526
